FAERS Safety Report 24725466 (Version 2)
Quarter: 2025Q1

REPORT INFORMATION
  Report Type: Spontaneous
  Country: JP (occurrence: JP)
  Receive Date: 20241212
  Receipt Date: 20250203
  Transmission Date: 20250409
  Serious: Yes (Death)
  Sender: ASTELLAS
  Company Number: JP-ASTELLAS-2024-AER-007261

PATIENT
  Age: 76 Year
  Sex: Male
  Weight: 58 kg

DRUGS (15)
  1. VYLOY [Suspect]
     Active Substance: ZOLBETUXIMAB-CLZB
     Indication: Gastric cancer stage IV
     Route: 042
     Dates: start: 20240819, end: 20240819
  2. FLUOROURACIL [Concomitant]
     Active Substance: FLUOROURACIL
     Indication: Gastric cancer stage IV
     Route: 042
     Dates: start: 20240819, end: 20240821
  3. LEVOLEUCOVORIN CALCIUM [Concomitant]
     Active Substance: LEVOLEUCOVORIN CALCIUM
     Indication: Gastric cancer stage IV
     Route: 042
     Dates: start: 20240819, end: 20240819
  4. OXALIPLATIN [Concomitant]
     Active Substance: OXALIPLATIN
     Indication: Gastric cancer stage IV
     Route: 042
     Dates: start: 20240819, end: 20240819
  5. OXALIPLATIN [Concomitant]
     Active Substance: OXALIPLATIN
     Route: 042
     Dates: start: 20240415, end: 20240722
  6. LEVOTHYROXINE [Concomitant]
     Active Substance: LEVOTHYROXINE
     Indication: Product used for unknown indication
     Route: 048
  7. BUFFERIN [Concomitant]
     Active Substance: ASPIRIN
     Indication: Product used for unknown indication
     Route: 048
  8. LIPITOR [Concomitant]
     Active Substance: ATORVASTATIN CALCIUM
     Indication: Product used for unknown indication
     Route: 048
  9. SODIUM FERROUS CITRATE [Concomitant]
     Active Substance: SODIUM FERROUS CITRATE
     Indication: Anaemia
     Route: 048
  10. PALONOSETRON [Concomitant]
     Active Substance: PALONOSETRON
     Indication: Gastric cancer stage IV
     Route: 042
     Dates: start: 20240819, end: 20240819
  11. DECADRON [Concomitant]
     Active Substance: DEXAMETHASONE
     Indication: Gastric cancer stage IV
     Route: 042
     Dates: start: 20240819, end: 20240819
  12. POLARAMINE [Concomitant]
     Active Substance: DEXCHLORPHENIRAMINE MALEATE
     Indication: Gastric cancer stage IV
     Route: 042
     Dates: start: 20240819, end: 20240819
  13. FOSNETUPITANT CHLORIDE HYDROCHLORIDE [Concomitant]
     Active Substance: FOSNETUPITANT CHLORIDE HYDROCHLORIDE
     Indication: Gastric cancer stage IV
     Route: 042
     Dates: start: 20240819, end: 20240819
  14. TS-1 [Concomitant]
     Active Substance: GIMERACIL\OTERACIL POTASSIUM\TEGAFUR
     Indication: Gastric cancer stage IV
     Route: 048
     Dates: start: 20240415, end: 20240805
  15. NIVOLUMAB [Concomitant]
     Active Substance: NIVOLUMAB
     Indication: Gastric cancer stage IV
     Route: 042
     Dates: start: 20240415, end: 20240722

REACTIONS (1)
  - Death [Fatal]

NARRATIVE: CASE EVENT DATE: 20240101
